FAERS Safety Report 13776721 (Version 1)
Quarter: 2017Q3

REPORT INFORMATION
  Report Type: Report from Study
  Country: JP (occurrence: JP)
  Receive Date: 20170721
  Receipt Date: 20170721
  Transmission Date: 20171127
  Serious: Yes (Hospitalization, Other)
  Sender: FDA-Public Use
  Company Number: JP-B.I. PHARMACEUTICALS,INC./RIDGEFIELD-2013-BI-35085BI

PATIENT
  Age: 74 Year
  Sex: Male
  Weight: 65 kg

DRUGS (9)
  1. BIBF 1120 [Suspect]
     Active Substance: NINTEDANIB
     Indication: IDIOPATHIC PULMONARY FIBROSIS
     Route: 048
     Dates: start: 20121219
  2. LOPEMIN [Concomitant]
     Active Substance: LOPERAMIDE HYDROCHLORIDE
     Indication: PROPHYLAXIS AGAINST DIARRHOEA
     Route: 048
     Dates: start: 20140529
  3. DOMICILLARY OXYGEN THERAPY [Concomitant]
     Indication: IDIOPATHIC PULMONARY FIBROSIS
     Dosage: ROUTE-NASAL,  DAILY DOSE AND DOSE PER APPLICATION: 2L ON EXERTION, 0L AT REST, 1L DURING SLEEP
     Route: 050
  4. ENTERONON-R [Concomitant]
     Active Substance: PROBIOTICS NOS
     Indication: DIARRHOEA
     Route: 048
     Dates: start: 20150615, end: 20150626
  5. ENDURA [Concomitant]
     Indication: WEIGHT DECREASED
     Dosage: DOSE PER APPLICATION AND DAILY DOSE: A CAN ONCE A DAY
     Route: 048
     Dates: start: 20150512
  6. MEDICON [Concomitant]
     Active Substance: DEXTROMETHORPHAN HYDROBROMIDE
     Indication: IDIOPATHIC PULMONARY FIBROSIS
     Route: 048
  7. CODEINE PHOSPHATE [Concomitant]
     Active Substance: CODEINE PHOSPHATE
     Indication: IDIOPATHIC PULMONARY FIBROSIS
     Route: 048
     Dates: start: 20150317
  8. LOPEMIN [Concomitant]
     Active Substance: LOPERAMIDE HYDROCHLORIDE
     Indication: DIARRHOEA
     Route: 048
     Dates: start: 20130217
  9. LOPEMIN [Concomitant]
     Active Substance: LOPERAMIDE HYDROCHLORIDE
     Route: 048
     Dates: start: 20150606

REACTIONS (9)
  - Diarrhoea [Recovered/Resolved]
  - Diarrhoea [Recovered/Resolved]
  - Renal cancer [Not Recovered/Not Resolved]
  - Pneumonia [Recovered/Resolved]
  - Idiopathic pulmonary fibrosis [Not Recovered/Not Resolved]
  - Pneumonia bacterial [Recovered/Resolved]
  - Pneumonia [Recovered/Resolved]
  - Respiratory tract infection [Recovered/Resolved]
  - Pneumonia [Recovered/Resolved]

NARRATIVE: CASE EVENT DATE: 20131028
